FAERS Safety Report 6381620-4 (Version None)
Quarter: 2009Q3

REPORT INFORMATION
  Report Type: 
  Country: None (occurrence: None)
  Receive Date: 20090930
  Receipt Date: 20070607
  Transmission Date: 20100115
  Serious: Yes (Other)
  Sender: FDA-Public Use
  Company Number: US-ASTRAZENECA-2006UW11508

PATIENT
  Age: 611 Month
  Sex: Male
  Weight: 69.4 kg

DRUGS (10)
  1. SEROQUEL [Suspect]
     Indication: DEPRESSION
     Dosage: 100 MG IN AM, 400 MG AT BEDTIME
     Route: 048
     Dates: start: 20020101
  2. SEROQUEL [Suspect]
     Indication: SCHIZOPHRENIA
     Dosage: 100 MG IN AM, 400 MG AT BEDTIME
     Route: 048
     Dates: start: 20020101
  3. SEROQUEL [Suspect]
     Dosage: 300-600 MG DAILY
     Route: 048
     Dates: start: 20031114
  4. SEROQUEL [Suspect]
     Dosage: 300-600 MG DAILY
     Route: 048
     Dates: start: 20031114
  5. ABILIFY [Concomitant]
  6. GEODON [Concomitant]
  7. RISPERDAL [Concomitant]
  8. TRILAFON [Concomitant]
  9. LEXAPRO [Concomitant]
  10. WELLBUTRIN [Concomitant]

REACTIONS (2)
  - DIABETES MELLITUS [None]
  - DIABETIC NEUROPATHY [None]
